FAERS Safety Report 9553895 (Version 1)
Quarter: 2013Q3

REPORT INFORMATION
  Report Type: Report from Study
  Country: CA (occurrence: CA)
  Receive Date: 20130925
  Receipt Date: 20130925
  Transmission Date: 20140515
  Serious: Yes (Other)
  Sender: FDA-Public Use
  Company Number: CA-JNJFOC-20130912088

PATIENT
  Age: 35 Year
  Sex: Male
  Weight: 56.7 kg

DRUGS (2)
  1. REMICADE [Suspect]
     Indication: CROHN^S DISEASE
     Route: 042
     Dates: start: 200803
  2. IMURAN [Concomitant]
     Route: 048

REACTIONS (2)
  - Nephrolithiasis [Recovering/Resolving]
  - Influenza like illness [Unknown]
